FAERS Safety Report 23870819 (Version 1)
Quarter: 2024Q2

REPORT INFORMATION
  Report Type: Spontaneous
  Country: US (occurrence: US)
  Receive Date: 20240518
  Receipt Date: 20240518
  Transmission Date: 20240716
  Serious: No
  Sender: FDA-Public Use
  Company Number: US-JNJFOC-20240540221

PATIENT
  Age: 12 Year
  Sex: Male

DRUGS (1)
  1. REMICADE [Suspect]
     Active Substance: INFLIXIMAB
     Indication: Crohn^s disease
     Dosage: THE DOSE STARTED OUT AT 250? MG AND THEN HALF-WAY THROUGH TREATMENT AFTER THE 4TH INFUSION THE?THE D
     Route: 041

REACTIONS (1)
  - Drug ineffective [Unknown]
